FAERS Safety Report 19259827 (Version 3)
Quarter: 2021Q3

REPORT INFORMATION
  Report Type: Spontaneous
  Country: CA (occurrence: CA)
  Receive Date: 20210514
  Receipt Date: 20210802
  Transmission Date: 20211014
  Serious: Yes (Other)
  Sender: FDA-Public Use
  Company Number: CA-GLAXOSMITHKLINE-CA2021101515

PATIENT
  Age: 70 Year
  Sex: Male

DRUGS (1)
  1. AVODART [Suspect]
     Active Substance: DUTASTERIDE
     Indication: PROSTATIC SPECIFIC ANTIGEN
     Dosage: UNK

REACTIONS (2)
  - Myocardial infarction [Unknown]
  - Prostate cancer [Unknown]

NARRATIVE: CASE EVENT DATE: 20180729
